FAERS Safety Report 9544255 (Version 1)
Quarter: 2013Q3

REPORT INFORMATION
  Report Type: Spontaneous
  Country: US (occurrence: US)
  Receive Date: 20130923
  Receipt Date: 20130923
  Transmission Date: 20140515
  Serious: Yes (Life-Threatening, Hospitalization)
  Sender: FDA-Public Use
  Company Number: US-ROXANE LABORATORIES, INC.-2013-RO-01551RO

PATIENT
  Age: 50 Year
  Sex: Female
  Weight: 103 kg

DRUGS (22)
  1. LITHIUM CARBONATE [Suspect]
  2. METHYLENE BLUE [Suspect]
     Indication: PARATHYROIDECTOMY
  3. LAMOTRIGINE [Suspect]
  4. CARBAMAZEPIN [Suspect]
  5. GABAPENTIN [Suspect]
  6. INSULIN [Concomitant]
  7. ATENOLOL [Concomitant]
  8. VERAPAMIL [Concomitant]
  9. LEVOTHYROXINE [Concomitant]
  10. OXYBUTYNIN [Concomitant]
  11. LORAZEPAM [Concomitant]
     Indication: AGITATION
     Dosage: 1 MG
     Route: 048
  12. LORAZEPAM [Concomitant]
     Indication: DISORIENTATION
  13. SIMVASTATIN [Concomitant]
  14. MIDAZOLAM [Concomitant]
     Indication: SEDATION
  15. FENTANYL [Concomitant]
     Indication: SEDATION
  16. FENTANYL [Concomitant]
     Indication: MAINTENANCE OF ANAESTHESIA
  17. FENTANYL [Concomitant]
  18. LIDOCAINE [Concomitant]
     Indication: ENDOTRACHEAL INTUBATION
  19. PROPOFOL [Concomitant]
     Indication: ENDOTRACHEAL INTUBATION
  20. SUCCINYLCHOLINE [Concomitant]
     Indication: ENDOTRACHEAL INTUBATION
  21. SEVOFLURANE [Concomitant]
     Indication: MAINTENANCE OF ANAESTHESIA
  22. MORPHINE [Concomitant]
     Indication: MAINTENANCE OF ANAESTHESIA

REACTIONS (3)
  - Cardio-respiratory arrest [Recovered/Resolved]
  - Toxic encephalopathy [Recovered/Resolved]
  - Diabetes insipidus [Unknown]
